FAERS Safety Report 6044216-X (Version None)
Quarter: 2009Q1

REPORT INFORMATION
  Report Type: 
  Country: None (occurrence: None)
  Receive Date: 20090120
  Receipt Date: 20080826
  Transmission Date: 20090719
  Serious: No
  Sender: FDA-Public Use
  Company Number: US-BAYER-200813605BCC

PATIENT
  Age: 59 Year
  Sex: Female
  Weight: 61 kg

DRUGS (5)
  1. ALEVE [Suspect]
     Indication: DRUG USE FOR UNKNOWN INDICATION
     Dosage: TOTAL DAILY DOSE: 220 MG  UNIT DOSE: 220 MG
     Route: 048
     Dates: start: 20080801, end: 20080826
  2. MULTI-VITAMIN [Concomitant]
     Route: 048
  3. ASCORBIC ACID [Concomitant]
  4. ASPIRIN [Concomitant]
  5. ONE A DAY WOMENS 50 PLUS ADVANTAGE [Concomitant]

REACTIONS (2)
  - OROPHARYNGEAL BLISTERING [None]
  - RASH [None]
